FAERS Safety Report 7146046-4 (Version None)
Quarter: 2010Q4

REPORT INFORMATION
  Report Type: 
  Country: None (occurrence: None)
  Receive Date: 20101208
  Receipt Date: 20101202
  Transmission Date: 20110411
  Serious: Yes (Death, Other)
  Sender: FDA-Public Use
  Company Number: US-BRISTOL-MYERS SQUIBB COMPANY-15418957

PATIENT

DRUGS (1)
  1. COUMADIN [Suspect]

REACTIONS (2)
  - HAEMORRHAGE [None]
  - INJURY [None]
